FAERS Safety Report 12426367 (Version 1)
Quarter: 2016Q2

REPORT INFORMATION
  Report Type: Spontaneous
  Country: US (occurrence: US)
  Receive Date: 20160601
  Receipt Date: 20160601
  Transmission Date: 20160815
  Serious: No
  Sender: FDA-Public Use
  Company Number: US-GLAXOSMITHKLINE-US2016GSK069965

PATIENT
  Age: 69 Year
  Sex: Female

DRUGS (1)
  1. TANZEUM [Suspect]
     Active Substance: ALBIGLUTIDE
     Indication: TYPE 2 DIABETES MELLITUS
     Dosage: 30 MG, WE
     Route: 042
     Dates: start: 201604

REACTIONS (5)
  - Abdominal distension [Unknown]
  - Constipation [Unknown]
  - Device use error [Unknown]
  - Rash macular [Unknown]
  - Decreased appetite [Unknown]

NARRATIVE: CASE EVENT DATE: 201604
